FAERS Safety Report 5754337-4 (Version None)
Quarter: 2008Q2

REPORT INFORMATION
  Report Type: 
  Country: None (occurrence: None)
  Receive Date: 20080530
  Receipt Date: 20080519
  Transmission Date: 20081010
  Serious: Yes (Death)
  Sender: FDA-Public Use
  Company Number: US-PFIZER INC-2008003005

PATIENT
  Age: 55 Year
  Sex: Female

DRUGS (3)
  1. PHENYTOIN [Suspect]
     Route: 047
  2. ACETAMINOPHEN/DIPHENHYDRAMINE [Suspect]
  3. BENZODIAZEPINE DERIVATIVES [Suspect]

REACTIONS (3)
  - CARDIAC ARREST [None]
  - COMPLETED SUICIDE [None]
  - RESPIRATORY ARREST [None]
